FAERS Safety Report 14705130 (Version 1)
Quarter: 2018Q2

REPORT INFORMATION
  Report Type: Spontaneous
  Country: CN (occurrence: CN)
  Receive Date: 20180402
  Receipt Date: 20180402
  Transmission Date: 20180711
  Serious: Yes (Other)
  Sender: FDA-Public Use
  Company Number: CN-BAYER-2018-056190

PATIENT
  Sex: Male

DRUGS (4)
  1. CYCLOSPORINE. [Concomitant]
     Active Substance: CYCLOSPORINE
     Dosage: 25 MG, BID
  2. SIROLIMUS. [Concomitant]
     Active Substance: SIROLIMUS
     Dosage: 1 MG, QD
  3. NEXAVAR [Suspect]
     Active Substance: SORAFENIB
     Indication: HEPATOCELLULAR CARCINOMA
     Dosage: 0.4 DF, BID
     Dates: start: 20160618
  4. TACE [Concomitant]
     Active Substance: CHLOROTRIANISENE

REACTIONS (5)
  - Diarrhoea [None]
  - Metastases to lymph nodes [None]
  - Alopecia [None]
  - Palmar-plantar erythrodysaesthesia syndrome [None]
  - Hepatocellular carcinoma [None]

NARRATIVE: CASE EVENT DATE: 20160805
